FAERS Safety Report 9221885 (Version 1)
Quarter: 2013Q2

REPORT INFORMATION
  Report Type: Spontaneous
  Country: NO (occurrence: None)
  Receive Date: 20130408
  Receipt Date: 20130408
  Transmission Date: 20140414
  Serious: Yes (Other)
  Sender: FDA-Public Use
  Company Number: SYM-2013-02268

PATIENT
  Age: 69 Year
  Sex: Female

DRUGS (7)
  1. WELLBUTRIN [Suspect]
     Indication: DEPRESSION
     Route: 048
  2. OLANZAPINE [Suspect]
     Indication: PRODUCT USED FOR UNKNOWN INDICATION
     Route: 048
  3. LEVAXIN (LEVOTHYROXINE SODIUM ) (LEVOTHYROXINE SODIUM) [Concomitant]
  4. KALEROID (POTASSIUM CHLORIDE) (POTASSIUM CHLORIDE) [Concomitant]
  5. IMOVANE (ZOPICLONE) (ZOPICLONE) [Concomitant]
  6. LOSARTAN (LOSARTAN) (LOSARTAN) [Concomitant]
  7. LITHIONIT (LITHIUM SULFATE ) (LITHIUM SULFATE) [Concomitant]

REACTIONS (3)
  - Parkinsonism [None]
  - Fall [None]
  - Spinal compression fracture [None]
